FAERS Safety Report 9442427 (Version 4)
Quarter: 2013Q4

REPORT INFORMATION
  Report Type: Spontaneous
  Country: FR (occurrence: FR)
  Receive Date: 20130806
  Receipt Date: 20131202
  Transmission Date: 20140711
  Serious: Yes (Other)
  Sender: FDA-Public Use
  Company Number: FR-PFIZER INC-2013226169

PATIENT
  Age: 76 Year
  Sex: Female
  Weight: 55 kg

DRUGS (3)
  1. TAHOR [Suspect]
     Indication: TYPE IIA HYPERLIPIDAEMIA
     Dosage: 40 MG, UNK
     Dates: start: 201307
  2. PLAVIX [Concomitant]
     Indication: RETINAL VEIN OCCLUSION
     Dosage: UNK
     Dates: start: 2003
  3. SPIRONOLACTONE [Concomitant]
     Indication: HYPERTENSION
     Dosage: UNK
     Dates: start: 2003

REACTIONS (1)
  - Age-related macular degeneration [Not Recovered/Not Resolved]
